FAERS Safety Report 8226984-1 (Version None)
Quarter: 2012Q1

REPORT INFORMATION
  Report Type: 
  Country: None (occurrence: None)
  Receive Date: 20120322
  Receipt Date: 20120312
  Transmission Date: 20120608
  Serious: Yes (Other)
  Sender: FDA-Public Use
  Company Number: CA-JNJFOC-20120207133

PATIENT
  Sex: Male
  Weight: 72 kg

DRUGS (60)
  1. UNIPHYL [Concomitant]
     Indication: CHRONIC OBSTRUCTIVE PULMONARY DISEASE
     Dosage: 1-PM
     Route: 065
     Dates: start: 20070706
  2. DEPO-MEDROL [Concomitant]
     Route: 065
     Dates: start: 20060111
  3. SALMETEROL XINAFOATE [Concomitant]
     Indication: CHRONIC OBSTRUCTIVE PULMONARY DISEASE
     Dosage: X2
     Route: 065
     Dates: start: 20090916
  4. FLOVENT [Concomitant]
     Indication: ASTHMA
     Dosage: 1 PUFF/DAY X2
     Route: 065
     Dates: start: 20090916
  5. PREDNISONE TAB [Concomitant]
     Dosage: 44 TABS
     Route: 065
     Dates: start: 20070614
  6. CEFPROZIL [Concomitant]
     Route: 065
     Dates: start: 20090213
  7. LEVOTEC [Concomitant]
     Route: 065
     Dates: start: 20100705
  8. DEPO-MEDROL [Concomitant]
     Indication: ARTHROPATHY
     Route: 065
     Dates: start: 20050826
  9. INNOHEP [Concomitant]
     Indication: GASTRIC DISORDER
     Route: 065
     Dates: start: 20071220
  10. SALMETEROL XINAFOATE [Concomitant]
     Indication: ASTHMA
     Dosage: X2
     Route: 065
     Dates: start: 20090916
  11. UNIPHYL [Concomitant]
     Indication: ASTHMA
     Dosage: 1-PM
     Route: 065
     Dates: start: 20070706
  12. FLOVENT [Concomitant]
     Indication: CHRONIC OBSTRUCTIVE PULMONARY DISEASE
     Dosage: 1 PUFF/DAY X2
     Route: 065
     Dates: start: 20090916
  13. METHOTREXATE [Concomitant]
     Indication: ARTHRITIS
     Dosage: CHANGED 12-FEB-2010; 27-JAN-2011
     Route: 065
     Dates: start: 20000712
  14. SULFASALAZINE [Concomitant]
     Indication: ARTHRITIS
     Route: 065
     Dates: start: 20051122
  15. TRUSOPT [Concomitant]
     Indication: EYE DISORDER
     Dosage: 2%
     Route: 065
     Dates: start: 20060827
  16. CLINDAMYCIN [Concomitant]
     Route: 065
     Dates: start: 20110812
  17. DEPO-MEDROL [Concomitant]
     Route: 065
     Dates: start: 20100506
  18. NORVASC [Concomitant]
     Indication: BLOOD PRESSURE
     Route: 065
     Dates: start: 20110811
  19. LIPITOR [Concomitant]
     Indication: CARDIAC DISORDER
     Route: 065
     Dates: start: 20030222
  20. ASPIRIN [Concomitant]
     Route: 065
     Dates: start: 20090717
  21. ALL OTHER THERAPEUTIC PRODUCTS [Concomitant]
     Indication: SINUS DISORDER
     Route: 065
     Dates: start: 20090115
  22. CEFPROZIL [Concomitant]
     Route: 065
     Dates: start: 20110303
  23. SODIUM HYALURONATE [Concomitant]
     Route: 065
     Dates: start: 20050805
  24. DEPO-MEDROL [Concomitant]
     Route: 065
     Dates: start: 20050922
  25. REMICADE [Suspect]
     Indication: PSORIATIC ARTHROPATHY
     Route: 042
     Dates: start: 20100826
  26. REMICADE [Suspect]
     Route: 042
     Dates: start: 20070301
  27. SPIRIVA [Concomitant]
     Indication: CHRONIC OBSTRUCTIVE PULMONARY DISEASE
     Route: 065
     Dates: start: 20070606
  28. APO-FOLIC [Concomitant]
     Indication: ARTHRITIS
     Dosage: 8-PM/WEEK
     Route: 065
     Dates: start: 20010704
  29. CEFPROZIL [Concomitant]
     Route: 065
     Dates: start: 20090627
  30. SODIUM HYALURONATE [Concomitant]
     Route: 065
     Dates: start: 20050729
  31. DEPO-MEDROL [Concomitant]
     Route: 065
     Dates: start: 20060809
  32. DEPO-MEDROL [Concomitant]
     Route: 065
     Dates: start: 20050922
  33. VENTOLIN [Concomitant]
     Indication: CHRONIC OBSTRUCTIVE PULMONARY DISEASE
     Dosage: 2 PUFFSX4/DAY WHEN NEEDED
     Route: 065
     Dates: start: 20080514
  34. TRAVATAN [Concomitant]
     Indication: EYE DISORDER
     Route: 065
     Dates: start: 20080430
  35. VIT B COMPLEX [Concomitant]
     Route: 065
     Dates: start: 20000303
  36. LEVOTEC [Concomitant]
     Route: 065
     Dates: start: 20101116
  37. DEPO-MEDROL [Concomitant]
     Route: 065
     Dates: start: 20100506
  38. DEPO-MEDROL [Concomitant]
     Route: 065
     Dates: start: 20060809
  39. DEPO-MEDROL [Concomitant]
     Route: 065
     Dates: start: 20050826
  40. NITROLINGUAL [Concomitant]
     Indication: CARDIAC DISORDER
     Dosage: PUMP 200DS
     Dates: start: 20030207
  41. SPIRIVA [Concomitant]
     Indication: ASTHMA
     Route: 065
     Dates: start: 20070606
  42. MONOCOR [Concomitant]
     Indication: BLOOD PRESSURE
     Route: 065
     Dates: start: 20030508
  43. PLAVIX [Concomitant]
     Indication: CARDIAC DISORDER
     Route: 065
     Dates: start: 20030207
  44. AVELOX [Concomitant]
     Route: 065
  45. DEPO-MEDROL [Concomitant]
     Route: 065
     Dates: start: 20071127
  46. DEPO-MEDROL [Concomitant]
     Route: 065
     Dates: start: 20060111
  47. NOVOCLOXIN [Concomitant]
     Route: 065
     Dates: start: 20071220
  48. TYLENOL [Concomitant]
     Route: 065
     Dates: start: 20071226
  49. VENTOLIN [Concomitant]
     Indication: ASTHMA
     Dosage: 2 PUFFSX4/DAY WHEN NEEDED
     Route: 065
     Dates: start: 20080514
  50. APO-HYDROXYQUINE [Concomitant]
     Indication: ARTHRITIS
     Dosage: 1-AM, 1-PM
     Route: 065
     Dates: start: 20050915
  51. AVAPRO [Concomitant]
     Indication: BLOOD PRESSURE
     Route: 065
     Dates: start: 20100405
  52. NITRO-DUR [Concomitant]
     Indication: CARDIAC DISORDER
     Route: 065
     Dates: start: 20100112
  53. PANTOPRAZOLE [Concomitant]
     Indication: GASTRIC DISORDER
     Route: 065
     Dates: start: 20090804
  54. RHINARIS [Concomitant]
     Indication: SINUS DISORDER
     Route: 065
     Dates: start: 20091219
  55. DETROL [Concomitant]
     Indication: PROSTATIC DISORDER
     Route: 065
     Dates: start: 20101109
  56. AZITHROMYCIN [Concomitant]
     Route: 065
  57. CEFPROZIL [Concomitant]
     Route: 065
     Dates: start: 20110607
  58. BIAXIN XL [Concomitant]
     Route: 065
     Dates: start: 20110110
  59. SODIUM HYALURONATE [Concomitant]
     Indication: ARTHROPATHY
     Route: 065
     Dates: start: 20050722
  60. DEPO-MEDROL [Concomitant]
     Route: 065
     Dates: start: 20071127

REACTIONS (1)
  - PHARYNGOESOPHAGEAL DIVERTICULUM [None]
